FAERS Safety Report 10575232 (Version 2)
Quarter: 2014Q4

REPORT INFORMATION
  Report Type: Spontaneous
  Country: US (occurrence: US)
  Receive Date: 20141111
  Receipt Date: 20141111
  Transmission Date: 20150529
  Serious: Yes (Other)
  Sender: FDA-Public Use
  Company Number: US-ROCHE-1480948

PATIENT
  Sex: Male

DRUGS (4)
  1. IMIQUIMOD. [Concomitant]
     Active Substance: IMIQUIMOD
     Route: 065
  2. ERIVEDGE [Suspect]
     Active Substance: VISMODEGIB
     Indication: BASAL CELL CARCINOMA
     Route: 048
     Dates: start: 20140910
  3. IBUPROFEN. [Concomitant]
     Active Substance: IBUPROFEN
     Indication: MUSCLE SPASMS
  4. ERIVEDGE [Suspect]
     Active Substance: VISMODEGIB
     Route: 048
     Dates: start: 201402

REACTIONS (4)
  - Basal cell carcinoma [Unknown]
  - Muscle spasms [Not Recovered/Not Resolved]
  - Flatulence [Unknown]
  - Diplopia [Not Recovered/Not Resolved]
